FAERS Safety Report 9130168 (Version 3)
Quarter: 2013Q1

REPORT INFORMATION
  Report Type: Spontaneous
  Country: JP (occurrence: JP)
  Receive Date: 20130228
  Receipt Date: 20130321
  Transmission Date: 20140127
  Serious: Yes (Death, Life-Threatening)
  Sender: FDA-Public Use
  Company Number: JP-ROCHE-1193888

PATIENT
  Age: 66 Year
  Sex: Male
  Weight: 58 kg

DRUGS (8)
  1. TAMIFLU [Suspect]
     Indication: INFLUENZA
     Route: 048
     Dates: start: 20130128, end: 20130130
  2. RISPERDAL [Concomitant]
     Indication: INFLUENZA
     Route: 048
     Dates: end: 20130130
  3. AKINETON [Concomitant]
     Indication: INFLUENZA
     Route: 048
     Dates: end: 20130130
  4. LODOPIN [Concomitant]
     Indication: INFLUENZA
     Route: 048
     Dates: end: 20130130
  5. TEGRETOL [Concomitant]
     Indication: INFLUENZA
     Route: 048
     Dates: end: 20130130
  6. PASOTOMIN [Concomitant]
     Indication: INFLUENZA
     Route: 048
     Dates: end: 20130130
  7. AMOBAN [Concomitant]
     Indication: INFLUENZA
     Route: 048
     Dates: end: 20130129
  8. VEGETAMIN [Concomitant]
     Indication: INFLUENZA
     Route: 048
     Dates: end: 20130129

REACTIONS (4)
  - Multi-organ failure [Fatal]
  - White blood cell count decreased [Fatal]
  - Disseminated intravascular coagulation [Fatal]
  - Pneumonia [Not Recovered/Not Resolved]
